FAERS Safety Report 22619048 (Version 1)
Quarter: 2023Q2

REPORT INFORMATION
  Report Type: Report from Study
  Country: US (occurrence: US)
  Receive Date: 20230620
  Receipt Date: 20230620
  Transmission Date: 20230722
  Serious: Yes (Hospitalization, Other)
  Sender: FDA-Public Use
  Company Number: US-TAKEDA-2023TUS058851

PATIENT
  Age: 56 Year
  Sex: Female

DRUGS (8)
  1. TEDUGLUTIDE [Suspect]
     Active Substance: TEDUGLUTIDE
     Indication: Short-bowel syndrome
     Dosage: 2.3 MILLIGRAM, QD
     Route: 042
     Dates: start: 20150207
  2. TEDUGLUTIDE [Suspect]
     Active Substance: TEDUGLUTIDE
     Indication: Short-bowel syndrome
     Dosage: 2.3 MILLIGRAM, QD
     Route: 042
     Dates: start: 20150207
  3. TEDUGLUTIDE [Suspect]
     Active Substance: TEDUGLUTIDE
     Indication: Short-bowel syndrome
     Dosage: 2.3 MILLIGRAM, QD
     Route: 042
     Dates: start: 20150207
  4. TEDUGLUTIDE [Suspect]
     Active Substance: TEDUGLUTIDE
     Indication: Short-bowel syndrome
     Dosage: 2.3 MILLIGRAM, QD
     Route: 042
     Dates: start: 20150207
  5. CEFEPIME [Concomitant]
     Active Substance: CEFEPIME HYDROCHLORIDE
     Indication: Septic shock
     Dosage: 2 GRAM, BID
     Route: 042
     Dates: start: 20230401, end: 20230405
  6. NOREPINEPHRINE [Concomitant]
     Active Substance: NOREPINEPHRINE
     Indication: Hypotension
     Dosage: 4 MILLIGRAM
     Route: 042
     Dates: start: 20230401, end: 20230403
  7. VANCOMYCIN [Concomitant]
     Active Substance: VANCOMYCIN
     Indication: Device related bacteraemia
     Dosage: 1000 MILLIGRAM, BID
     Route: 042
     Dates: start: 20230128, end: 20230206
  8. VANCOMYCIN [Concomitant]
     Active Substance: VANCOMYCIN
     Indication: Endocarditis
     Dosage: 750 MILLIGRAM, BID
     Route: 042
     Dates: start: 20230303

REACTIONS (3)
  - Endocarditis [Not Recovered/Not Resolved]
  - Septic shock [Recovered/Resolved]
  - Device related bacteraemia [Not Recovered/Not Resolved]

NARRATIVE: CASE EVENT DATE: 20230127
